FAERS Safety Report 10063561 (Version 1)
Quarter: 2014Q1

REPORT INFORMATION
  Report Type: Spontaneous
  Country: US (occurrence: None)
  Receive Date: 20140328
  Receipt Date: 20140328
  Transmission Date: 20141002
  Serious: Yes (Other)
  Sender: FDA-Public Use
  Company Number: PHEH2014US001150

PATIENT
  Age: 74 Year
  Sex: Female

DRUGS (2)
  1. AFINITOR (RAD) TABLET, 10MG [Suspect]
     Indication: BREAST CANCER
     Route: 048
     Dates: start: 20131202, end: 20140109
  2. EXEMESTANE (EXEMESTANE) [Concomitant]

REACTIONS (2)
  - Pneumonitis [None]
  - Dyspnoea [None]
